FAERS Safety Report 15979214 (Version 1)
Quarter: 2019Q1

REPORT INFORMATION
  Report Type: Report from Study
  Country: None (occurrence: US)
  Receive Date: 20190219
  Receipt Date: 20190219
  Transmission Date: 20190418
  Serious: Yes (Other)
  Sender: FDA-Public Use
  Company Number: US-ABBVIE-19K-163-2665994-00

PATIENT
  Sex: Female

DRUGS (2)
  1. HUMIRA [Suspect]
     Active Substance: ADALIMUMAB
     Indication: COLITIS ULCERATIVE
     Dosage: CITRATE FREE
     Route: 058
  2. HUMIRA [Suspect]
     Active Substance: ADALIMUMAB
     Indication: UVEITIS

REACTIONS (5)
  - Injection site urticaria [Recovering/Resolving]
  - Blindness unilateral [Not Recovered/Not Resolved]
  - Injection site pain [Recovering/Resolving]
  - Injection site papule [Recovering/Resolving]
  - Injection site bruising [Recovering/Resolving]
